FAERS Safety Report 21574155 (Version 2)
Quarter: 2023Q1

REPORT INFORMATION
  Report Type: Spontaneous
  Country: US (occurrence: US)
  Receive Date: 20221109
  Receipt Date: 20230113
  Transmission Date: 20230417
  Serious: No
  Sender: FDA-Public Use
  Company Number: US-PFIZER INC-PV202200072576

PATIENT
  Age: 67 Year
  Sex: Female

DRUGS (1)
  1. XELJANZ XR [Suspect]
     Active Substance: TOFACITINIB CITRATE
     Indication: Rheumatoid arthritis
     Dosage: 11 MG, 1X/DAY
     Route: 048
     Dates: start: 20220919

REACTIONS (5)
  - Productive cough [Unknown]
  - Peripheral swelling [Unknown]
  - Diarrhoea [Recovered/Resolved]
  - Condition aggravated [Unknown]
  - Nail disorder [Unknown]

NARRATIVE: CASE EVENT DATE: 20220901
